FAERS Safety Report 12497070 (Version 1)
Quarter: 2016Q2

REPORT INFORMATION
  Report Type: Other
  Country: DE (occurrence: DE)
  Receive Date: 20160624
  Receipt Date: 20160624
  Transmission Date: 20160815
  Serious: Yes (Death, Other)
  Sender: FDA-Public Use
  Company Number: DE-CIPLA LTD.-2016DE08090

PATIENT

DRUGS (4)
  1. OLANZAPINE. [Suspect]
     Active Substance: OLANZAPINE
     Dosage: 20 MG/TG
     Route: 048
  2. QUETIAPINE. [Suspect]
     Active Substance: QUETIAPINE
     Dosage: 100 MG/TG
     Route: 048
  3. PAROXETINE. [Suspect]
     Active Substance: PAROXETINE
     Dosage: 10 MG / TG
     Route: 048
  4. CLONAZEPAM. [Suspect]
     Active Substance: CLONAZEPAM
     Dosage: 3 * 1 MG / TG., UNK
     Route: 048

REACTIONS (8)
  - Hypotension [Not Recovered/Not Resolved]
  - Unresponsive to stimuli [Unknown]
  - Hypoxia [Not Recovered/Not Resolved]
  - Coma [Unknown]
  - Hypothermia [Unknown]
  - Cardiac arrest [Unknown]
  - Hyponatraemia [Unknown]
  - Death [Fatal]
